FAERS Safety Report 10681380 (Version 1)
Quarter: 2014Q4

REPORT INFORMATION
  Report Type: Spontaneous
  Country: US (occurrence: US)
  Receive Date: 20141230
  Receipt Date: 20141230
  Transmission Date: 20150529
  Serious: Yes (Other)
  Sender: FDA-Public Use
  Company Number: US-JNJCP-30000256873

PATIENT
  Sex: Female
  Weight: 71 kg

DRUGS (5)
  1. HEART MEDICINE [Concomitant]
     Indication: HEART RATE IRREGULAR
     Dosage: ONE PER DAY SINCE YEARS
  2. WATER PILL [Concomitant]
     Active Substance: UNSPECIFIED INGREDIENT
     Dosage: ONE PER DAY SINCE YEARS
  3. NEUTROGENA HEALTHY SKIN ANTI-WRINKLE ANTI-BLEMISH CLEANSER [Suspect]
     Active Substance: SALICYLIC ACID
     Indication: SKIN WRINKLING
     Dosage: HALF OF A QUARTER TWICE A DAY
     Route: 061
  4. BLOOD PRESSURE MEDICATION [Concomitant]
     Active Substance: UNSPECIFIED INGREDIENT
     Indication: HYPERTENSION
     Dosage: ONE PER DAY SINCE YEARS
  5. VITAMIN B12 [Concomitant]
     Active Substance: CYANOCOBALAMIN
     Indication: ROUTINE HEALTH MAINTENANCE
     Dosage: ONE PER DAY SINCE YEARS

REACTIONS (3)
  - Paralysis [Not Recovered/Not Resolved]
  - Hypoaesthesia [None]
  - Dry throat [None]
